FAERS Safety Report 11090213 (Version 1)
Quarter: 2015Q2

REPORT INFORMATION
  Report Type: Spontaneous
  Country: US (occurrence: None)
  Receive Date: 20150504
  Receipt Date: 20150504
  Transmission Date: 20150821
  Serious: Yes (Other)
  Sender: FDA-Public Use
  Company Number: None

PATIENT
  Age: 79 Year
  Sex: Male
  Weight: 69.4 kg

DRUGS (14)
  1. FOSAMAX [Concomitant]
     Active Substance: ALENDRONATE SODIUM
  2. PRESERVISION [Concomitant]
     Active Substance: MINERALS\VITAMINS
  3. ZYRTEC [Concomitant]
     Active Substance: CETIRIZINE HYDROCHLORIDE
  4. NEXIUM [Concomitant]
     Active Substance: ESOMEPRAZOLE MAGNESIUM
  5. ALBUTEROL INHALER [Concomitant]
     Active Substance: ALBUTEROL
  6. ACCOLATE [Concomitant]
     Active Substance: ZAFIRLUKAST
  7. CALCIUM 600 MG WITH VIT D [Concomitant]
  8. MIRABEGRON 25 MG ASTELLAS PHARMA US, INC. [Suspect]
     Active Substance: MIRABEGRON
     Indication: HYPERTONIC BLADDER
     Route: 048
     Dates: start: 20150123, end: 20150203
  9. MIRABEGRON 25 MG ASTELLAS PHARMA US, INC. [Suspect]
     Active Substance: MIRABEGRON
     Indication: BLOOD PRESSURE ABNORMAL
     Route: 048
     Dates: start: 20150123, end: 20150203
  10. LEVOTHYROXIN SYMBICORT [Concomitant]
  11. REMERON [Concomitant]
     Active Substance: MIRTAZAPINE
  12. MIRABEGRON 25 MG ASTELLAS PHARMA US, INC. [Suspect]
     Active Substance: MIRABEGRON
     Indication: PROSTATOMEGALY
     Route: 048
     Dates: start: 20150123, end: 20150203
  13. XALATAN [Concomitant]
     Active Substance: LATANOPROST
  14. SUDAFED [Concomitant]
     Active Substance: PSEUDOEPHEDRINE HYDROCHLORIDE

REACTIONS (3)
  - Rhinitis [None]
  - Rash [None]
  - Pruritus [None]

NARRATIVE: CASE EVENT DATE: 20150123
